FAERS Safety Report 4915245-1 (Version None)
Quarter: 2006Q1

REPORT INFORMATION
  Report Type: 
  Country: None (occurrence: None)
  Receive Date: 20060216
  Receipt Date: 20060216
  Transmission Date: 20060701
  Serious: Yes (Hospitalization)
  Sender: FDA-Public Use
  Company Number: None

PATIENT
  Sex: Male
  Weight: 65.7716 kg

DRUGS (10)
  1. DIGOXIN [Suspect]
     Indication: ATRIAL FIBRILLATION
     Dosage: PO  PRIOR TO ADMISSION
     Route: 048
  2. LOPRESSOR [Suspect]
     Indication: HYPERTENSION
     Dosage: PO  PRIOR TO ADMISSION
     Route: 048
  3. LANTUS [Concomitant]
  4. ASPIRIN [Concomitant]
  5. ACCUPRIL [Concomitant]
  6. LOZOL [Concomitant]
  7. LOPID [Concomitant]
  8. DIGOXIN [Concomitant]
  9. ... [Concomitant]
  10. IMDUR [Suspect]
     Dosage: 30 MG PO QD

REACTIONS (2)
  - HYPOTENSION [None]
  - LOSS OF CONSCIOUSNESS [None]
